FAERS Safety Report 8003363-3 (Version None)
Quarter: 2011Q4

REPORT INFORMATION
  Report Type: 
  Country: None (occurrence: None)
  Receive Date: 20111222
  Receipt Date: 20111208
  Transmission Date: 20120403
  Serious: Yes (Life-Threatening, Hospitalization)
  Sender: FDA-Public Use
  Company Number: FR-PFIZER INC-K201100905

PATIENT
  Age: 91 Year
  Sex: Female

DRUGS (5)
  1. ALTACE [Suspect]
     Indication: CARDIAC FAILURE CONGESTIVE
     Dosage: 10 MG, UNK
     Route: 048
  2. BENDROFLUAZIDE [Suspect]
     Indication: CARDIAC FAILURE CONGESTIVE
     Dosage: 2.5 MG, UNK
     Route: 048
  3. CARVEDILOL [Concomitant]
     Dosage: UNK
  4. WARFARIN [Concomitant]
     Dosage: UNK
  5. TRIMETHOPRIM [Suspect]
     Indication: URINARY TRACT INFECTION
     Dosage: 200 MG, 2X/DAY
     Route: 048
     Dates: start: 20101229, end: 20110101

REACTIONS (3)
  - CONFUSIONAL STATE [None]
  - HYPONATRAEMIA [None]
  - DRUG INTERACTION [None]
